FAERS Safety Report 8529940-9 (Version None)
Quarter: 2012Q3

REPORT INFORMATION
  Report Type: 
  Country: None (occurrence: None)
  Receive Date: 20120723
  Receipt Date: 20120712
  Transmission Date: 20120928
  Serious: Yes (Hospitalization)
  Sender: FDA-Public Use
  Company Number: US-GENZYME-LEUK-1000254

PATIENT
  Sex: Female
  Weight: 57.72 kg

DRUGS (19)
  1. LEUKINE [Suspect]
     Dosage: 250 MCG, QD (DAYS 1-14)
     Route: 058
     Dates: start: 20120119, end: 20120201
  2. IPILIMUMAB [Suspect]
     Dosage: UNK
     Route: 065
     Dates: start: 20110804, end: 20110825
  3. KLONOPIN [Concomitant]
     Indication: PRODUCT USED FOR UNKNOWN INDICATION
     Dosage: UNK
     Route: 065
  4. ASCORBIC ACID [Concomitant]
     Indication: PRODUCT USED FOR UNKNOWN INDICATION
     Dosage: UNK
     Route: 065
  5. WELLBUTRIN [Concomitant]
     Indication: PRODUCT USED FOR UNKNOWN INDICATION
  6. EXTRA STRENGTH TYLENOL [Concomitant]
     Indication: PRODUCT USED FOR UNKNOWN INDICATION
     Dosage: UNK
     Route: 065
  7. LEUKINE [Suspect]
     Indication: MALIGNANT MELANOMA
     Dosage: 250 MCG, QD(DAYS 1-14)
     Route: 058
     Dates: start: 20110804, end: 20110817
  8. IPILIMUMAB [Suspect]
     Indication: MALIGNANT MELANOMA
     Dosage: 10 MG/KG, (DAY 1, Q12 WKS)
     Route: 042
     Dates: start: 20110804, end: 20110804
  9. CLONAZEPAM [Concomitant]
     Indication: PRODUCT USED FOR UNKNOWN INDICATION
     Dosage: UNK
     Route: 065
  10. EFFEXOR [Concomitant]
     Indication: PRODUCT USED FOR UNKNOWN INDICATION
     Dosage: UNK
     Route: 065
  11. MULTI-VITAMINS [Concomitant]
     Indication: PRODUCT USED FOR UNKNOWN INDICATION
     Dosage: UNK
     Route: 055
  12. LASIX [Concomitant]
     Indication: PRODUCT USED FOR UNKNOWN INDICATION
     Dosage: UNK
     Route: 065
  13. SELENIUM [Concomitant]
     Indication: PRODUCT USED FOR UNKNOWN INDICATION
     Dosage: UNK
     Route: 065
  14. DIFENHYDRAMIN [Concomitant]
     Indication: PRODUCT USED FOR UNKNOWN INDICATION
     Dosage: UNK
     Route: 065
  15. ASPIRIN [Concomitant]
     Indication: PRODUCT USED FOR UNKNOWN INDICATION
     Dosage: UNK
     Route: 065
  16. IPILIMUMAB [Suspect]
     Dosage: 10 MG/KG, DAY 1, Q12WKS
     Route: 042
     Dates: start: 20111229, end: 20111229
  17. IPILIMUMAB [Suspect]
     Dosage: 10 MG/KG, (DAYS 1, Q12 WKS)
     Route: 042
     Dates: start: 20110825, end: 20110825
  18. VITAMIN D [Concomitant]
     Indication: PRODUCT USED FOR UNKNOWN INDICATION
     Dosage: UNK
     Route: 065
  19. PRILOSEC [Concomitant]
     Indication: PRODUCT USED FOR UNKNOWN INDICATION
     Dosage: UNK
     Route: 065

REACTIONS (6)
  - NAUSEA [None]
  - ABDOMINAL DISCOMFORT [None]
  - COLITIS [None]
  - INJECTION SITE REACTION [None]
  - DIARRHOEA [None]
  - URINARY TRACT INFECTION [None]
